FAERS Safety Report 8494486 (Version 3)
Quarter: 2012Q4

REPORT INFORMATION
  Report Type: 
  Country: US (occurrence: US)
  Receive Date: 20120404
  Receipt Date: 20120917
  Transmission Date: 20130627
  Serious: Yes (Hospitalization)
  Sender: FDA-Public Use
  Company Number: US-PFIZER INC-2009215550

PATIENT
  Age: 61 Year
  Sex: Female
  Weight: 92.2 kg

DRUGS (33)
  1. AXITINIB [Suspect]
     Indication: THYROID CANCER
     Dosage: 7 mg, 2x/day
     Route: 048
     Dates: start: 20071116, end: 20080430
  2. AXITINIB [Suspect]
     Dosage: 5 mg, 2x/day, only took pm dose on 16May2008
     Route: 048
     Dates: start: 20080516, end: 20090508
  3. HYDROCODONE W/ACETAMINOPHEN [Concomitant]
     Indication: ARTHRITIS
     Dosage: 7.5mg/500mg
     Route: 048
     Dates: start: 20070320
  4. METFORMIN HCL/PIOGLITAZONE HCL [Concomitant]
     Indication: DIABETES MELLITUS
     Dosage: 800mg/15mg
     Route: 048
     Dates: start: 20070302
  5. ADVAIR DISKUS [Concomitant]
     Indication: ASTHMA
     Dosage: 250mcg/50mcg
     Dates: start: 20070302
  6. ADVAIR DISKUS [Concomitant]
     Indication: CHRONIC OBSTRUCTIVE PULMONARY DISEASE
  7. PIRBUTEROL ACETATE [Concomitant]
     Indication: ASTHMA
     Dosage: 0.2 mg, every inhalation
     Route: 055
     Dates: start: 20070302
  8. BENADRYL [Concomitant]
     Indication: INSOMNIA
     Dosage: 25 mg, UNK
     Dates: start: 20070302
  9. BUPROPION [Concomitant]
     Indication: DEPRESSION
     Dosage: 150 mg, UNK
     Dates: start: 20070302
  10. DIPYRIDAMOLE [Concomitant]
     Indication: THROMBOSIS PROPHYLAXIS
     Dosage: 25 mg, UNK
     Dates: start: 20070302
  11. GLIPIZIDE [Concomitant]
     Indication: DIABETES MELLITUS
     Dosage: 2.5 mg, UNK
     Dates: start: 20070320
  12. NEXIUM [Concomitant]
     Indication: GASTROOESOPHAGEAL REFLUX DISEASE
     Dosage: 40 mg, UNK
     Dates: start: 20070320
  13. MELATONIN [Concomitant]
     Indication: INSOMNIA
     Dosage: 3 mg, UNK
     Dates: start: 20070302
  14. PRAVASTATIN [Concomitant]
     Indication: HYPERLIPIDAEMIA
     Dosage: 20 mg, UNK
     Dates: start: 20070302
  15. SYNTHROID [Concomitant]
     Indication: HYPOTHYROIDISM
     Dosage: 112 ug, UNK
     Dates: start: 20070302
  16. TYLENOL [Concomitant]
     Indication: ARTHRITIS
     Dosage: 500 mg, UNK
     Dates: start: 20070320
  17. ZYRTEC [Concomitant]
     Indication: ASTHMA
     Dosage: 10 mg, UNK
     Dates: start: 20070302
  18. ACETYLSALICYLIC ACID [Concomitant]
     Indication: THROMBOSIS PROPHYLAXIS
     Dosage: 81 mg, UNK
     Dates: start: 20070520
  19. FENTANYL [Concomitant]
     Indication: ARTHRITIS
     Dosage: 75 ug, every hour
     Dates: start: 20070825
  20. FLUOROMETHOLONE [Concomitant]
     Indication: EYE INFLAMMATION
     Dosage: UNK
     Route: 047
     Dates: start: 20070302
  21. SENNA [Concomitant]
     Indication: CONSTIPATION
     Dosage: UNK
     Dates: start: 20071214
  22. MAGNESIUM HYDROXIDE [Concomitant]
     Indication: CONSTIPATION
     Dosage: UNK
     Dates: start: 20071214
  23. MIRALAX [Concomitant]
     Indication: CONSTIPATION
     Dosage: UNK
     Dates: start: 20071214
  24. AVAPRO [Concomitant]
     Dosage: 300 mg, UNK
  25. INDAPAMIDE [Concomitant]
     Dosage: 2.5 mg, UNK
  26. NYSTATIN [Concomitant]
     Dosage: UNK
     Route: 061
  27. VICODIN [Concomitant]
     Dosage: 500mg/7.5mg
     Route: 048
     Dates: start: 20070320
  28. NORVASC [Concomitant]
     Dosage: 5 mg, UNK
  29. METFORMIN [Concomitant]
     Indication: DIABETES MELLITUS
     Dosage: UNK
     Dates: start: 20070302
  30. MAXAIR [Concomitant]
     Indication: ASTHMA
     Dosage: UNK
     Dates: start: 20070302
  31. MULTIVITAMINS [Concomitant]
     Indication: SUPPLEMENTATION THERAPY
     Dosage: UNK
     Dates: start: 20070302
  32. AMITIZA [Concomitant]
     Indication: CONSTIPATION
     Dosage: UNK
     Dates: start: 20080116
  33. AMOXICILLIN [Concomitant]
     Dosage: UNK
     Dates: start: 20080408

REACTIONS (1)
  - Skin ulcer [Recovered/Resolved]
